FAERS Safety Report 19218277 (Version 1)
Quarter: 2021Q2

REPORT INFORMATION
  Report Type: Spontaneous
  Country: FR (occurrence: FR)
  Receive Date: 20210502
  Receipt Date: 20210502
  Transmission Date: 20210717
  Serious: Yes (Hospitalization)
  Sender: FDA-Public Use
  Company Number: FR-009507513-2104FRA007574

PATIENT
  Age: 56 Year
  Sex: Female
  Weight: 61 kg

DRUGS (8)
  1. ULTIBRO [Concomitant]
     Active Substance: GLYCOPYRRONIUM\INDACATEROL
  2. DIFFU?K [Concomitant]
     Active Substance: POTASSIUM CHLORIDE
  3. TAVANIC [Suspect]
     Active Substance: LEVOFLOXACIN
     Indication: RHINITIS
     Dosage: 1 DOSAGE FORM, QD
     Route: 048
     Dates: start: 20210106, end: 20210116
  4. SPECIAFOLDINE [Concomitant]
     Active Substance: FOLIC ACID
  5. KEYTRUDA [Suspect]
     Active Substance: PEMBROLIZUMAB
     Indication: LUNG ADENOCARCINOMA
     Dosage: 200 MILLIGRAM, Q3W
     Route: 042
     Dates: start: 202001, end: 20201215
  6. IRBESARTAN. [Suspect]
     Active Substance: IRBESARTAN
     Indication: HYPERTENSION
     Dosage: 75 MILLIGRAM, QD
     Route: 048
     Dates: end: 202103
  7. FLUCON (FLUOROMETHOLONE) [Concomitant]
     Active Substance: FLUOROMETHOLONE
  8. FUROSEMIDE. [Suspect]
     Active Substance: FUROSEMIDE
     Indication: HYPERTENSION
     Dosage: 40 MILLIGRAM, QD
     Route: 048
     Dates: end: 202103

REACTIONS (1)
  - Renal tubular necrosis [Recovered/Resolved with Sequelae]
